FAERS Safety Report 10964379 (Version 1)
Quarter: 2015Q1

REPORT INFORMATION
  Report Type: Spontaneous
  Country: US (occurrence: None)
  Receive Date: 20150226
  Receipt Date: 20150226
  Transmission Date: 20150721
  Serious: Yes (Other)
  Sender: FDA-Public Use
  Company Number: TPA2012A03707

PATIENT
  Age: 66 Year
  Sex: Male
  Weight: 80.29 kg

DRUGS (4)
  1. LOSARTAN/HCTZ (HYDROCHLOROTHIAZIDE, LOSARTAN POTASSIUM) [Concomitant]
  2. LIPITOR [Concomitant]
     Active Substance: ATORVASTATIN CALCIUM
  3. ACTOS [Suspect]
     Active Substance: PIOGLITAZONE HYDROCHLORIDE
     Indication: TYPE 2 DIABETES MELLITUS
     Dosage: 1 IN 1 D
     Route: 048
     Dates: start: 200009, end: 20120509
  4. PRANDIN (DEFLAZACORT) [Concomitant]
     Active Substance: DEFLAZACORT

REACTIONS (2)
  - Bladder cancer [None]
  - Blood urine present [None]

NARRATIVE: CASE EVENT DATE: 20120511
